FAERS Safety Report 10480322 (Version 1)
Quarter: 2014Q3

REPORT INFORMATION
  Report Type: Spontaneous
  Country: US (occurrence: CA)
  Receive Date: 20140929
  Receipt Date: 20140929
  Transmission Date: 20150326
  Serious: Yes (Life-Threatening, Hospitalization)
  Sender: FDA-Public Use
  Company Number: 2014SP005490

PATIENT
  Age: 71 Year
  Sex: Female

DRUGS (15)
  1. CYCLOBENZAPRINE [Concomitant]
     Active Substance: CYCLOBENZAPRINE
  2. FOLIC ACID. [Concomitant]
     Active Substance: FOLIC ACID
  3. WEBBER NATURALS VITAMIN B50 COMPLEX [Concomitant]
  4. CALCIUM CHLORIDE. [Concomitant]
     Active Substance: CALCIUM CHLORIDE
  5. ORENCIA [Suspect]
     Active Substance: ABATACEPT
     Indication: PRODUCT USED FOR UNKNOWN INDICATION
     Route: 042
  6. GABAPENTIN. [Concomitant]
     Active Substance: GABAPENTIN
  7. OXYBUTYNIN [Concomitant]
     Active Substance: OXYBUTYNIN
  8. SYMBICORT [Concomitant]
     Active Substance: BUDESONIDE\FORMOTEROL FUMARATE DIHYDRATE
  9. VITAMIN D /00107901/ [Concomitant]
     Active Substance: ERGOCALCIFEROL
  10. ACIDOPHILUS [Concomitant]
     Active Substance: LACTOBACILLUS ACIDOPHILUS
  11. PANTOPRAZOLE [Concomitant]
     Active Substance: PANTOPRAZOLE SODIUM
  12. METHOTREXATE [Suspect]
     Active Substance: METHOTREXATE
     Indication: PRODUCT USED FOR UNKNOWN INDICATION
  13. OXYCONTIN [Concomitant]
     Active Substance: OXYCODONE HYDROCHLORIDE
  14. PREDNISONE. [Concomitant]
     Active Substance: PREDNISONE
  15. HYDROMORPHONE [Concomitant]
     Active Substance: HYDROMORPHONE

REACTIONS (5)
  - Skin cancer [Unknown]
  - Vomiting [Unknown]
  - Infection [Unknown]
  - Nausea [Unknown]
  - Cholelithiasis [Unknown]
